FAERS Safety Report 25987074 (Version 1)
Quarter: 2025Q4

REPORT INFORMATION
  Report Type: Spontaneous
  Country: CA (occurrence: CA)
  Receive Date: 20251103
  Receipt Date: 20251103
  Transmission Date: 20260117
  Serious: Yes (Death, Life-Threatening, Hospitalization, Disabling, Other)
  Sender: Haleon PLC
  Company Number: CA-HALEON-2271109

PATIENT
  Age: 44 Year
  Sex: Female
  Weight: 78 kg

DRUGS (210)
  1. DICLOFENAC DIETHYLAMINE [Suspect]
     Active Substance: DICLOFENAC DIETHYLAMINE
     Indication: Product used for unknown indication
     Dosage: ROUTE OF ADMINISTRATION: UNKNOWN
  2. DICLOFENAC DIETHYLAMINE [Suspect]
     Active Substance: DICLOFENAC DIETHYLAMINE
     Dosage: ROUTE OF ADMINISTRATION: UNKNOWN
  3. DICLOFENAC POTASSIUM [Suspect]
     Active Substance: DICLOFENAC POTASSIUM
     Indication: Product used for unknown indication
     Dosage: DOSE FORM: UNKNOWN, ROUTE OF ADMINISTRATION: OPHTHALMIC
  4. DICLOFENAC POTASSIUM [Suspect]
     Active Substance: DICLOFENAC POTASSIUM
     Dosage: DOSE FORM: UNKNOWN
     Route: 048
  5. DICLOFENAC POTASSIUM [Suspect]
     Active Substance: DICLOFENAC POTASSIUM
     Dosage: DOSE FORM: UNKNOWN, ROUTE OF ADMINISTRATION: UNKNOWN
  6. DICLOFENAC POTASSIUM [Suspect]
     Active Substance: DICLOFENAC POTASSIUM
     Indication: Product used for unknown indication
     Route: 058
  7. DICLOFENAC POTASSIUM [Suspect]
     Active Substance: DICLOFENAC POTASSIUM
     Dosage: ROUTE OF ADMINISTRATION: UNKNOWN
  8. DICLOFENAC [Suspect]
     Active Substance: DICLOFENAC
     Indication: Product used for unknown indication
     Dosage: DOSE FORM: UNKNOWN, ROUTE OF ADMINISTRATION: OPHTHALMIC
  9. DICLOFENAC [Suspect]
     Active Substance: DICLOFENAC
     Dosage: ROUTE OF ADMINISTRATION: UNKNOWN
  10. ACETAMINOPHEN\OXYCODONE HYDROCHLORIDE [Suspect]
     Active Substance: ACETAMINOPHEN\OXYCODONE HYDROCHLORIDE
     Indication: Product used for unknown indication
     Dosage: ROUTE OF ADMINISTRATION: UNKNOWN
  11. ACTEMRA [Suspect]
     Active Substance: TOCILIZUMAB
     Indication: Rheumatoid arthritis
     Route: 042
  12. ACTEMRA [Suspect]
     Active Substance: TOCILIZUMAB
     Route: 042
  13. ACTEMRA [Suspect]
     Active Substance: TOCILIZUMAB
     Route: 058
  14. ACTEMRA [Suspect]
     Active Substance: TOCILIZUMAB
     Route: 042
  15. ACTEMRA [Suspect]
     Active Substance: TOCILIZUMAB
     Route: 042
  16. ACTEMRA [Suspect]
     Active Substance: TOCILIZUMAB
     Route: 042
  17. ACTEMRA [Suspect]
     Active Substance: TOCILIZUMAB
     Dosage: ROUTE OF ADMINISTRATION: UNKNOWN
  18. ACTEMRA [Suspect]
     Active Substance: TOCILIZUMAB
     Dosage: ROUTE OF ADMINISTRATION: UNKNOWN
  19. ACTEMRA [Suspect]
     Active Substance: TOCILIZUMAB
     Route: 016
  20. ACTEMRA [Suspect]
     Active Substance: TOCILIZUMAB
     Dosage: ROUTE OF ADMINISTRATION: UNKNOWN
  21. ACTEMRA [Suspect]
     Active Substance: TOCILIZUMAB
     Route: 042
  22. ACTEMRA [Suspect]
     Active Substance: TOCILIZUMAB
     Route: 042
  23. ACTEMRA [Suspect]
     Active Substance: TOCILIZUMAB
     Route: 042
  24. ACTEMRA [Suspect]
     Active Substance: TOCILIZUMAB
     Route: 042
  25. ACTEMRA [Suspect]
     Active Substance: TOCILIZUMAB
     Route: 048
  26. ACTEMRA [Suspect]
     Active Substance: TOCILIZUMAB
     Route: 042
  27. ACTEMRA [Suspect]
     Active Substance: TOCILIZUMAB
     Route: 042
  28. ACTEMRA [Suspect]
     Active Substance: TOCILIZUMAB
     Route: 042
  29. ACTEMRA [Suspect]
     Active Substance: TOCILIZUMAB
     Route: 042
  30. ALENDRONIC ACID [Suspect]
     Active Substance: ALENDRONIC ACID
     Indication: Rheumatoid arthritis
     Route: 048
  31. ALENDRONIC ACID [Suspect]
     Active Substance: ALENDRONIC ACID
     Route: 048
  32. ALENDRONIC ACID [Suspect]
     Active Substance: ALENDRONIC ACID
     Route: 016
  33. FOSAMAX [Suspect]
     Active Substance: ALENDRONATE SODIUM
     Indication: Rheumatoid arthritis
     Route: 058
  34. FOSAMAX [Suspect]
     Active Substance: ALENDRONATE SODIUM
     Dosage: ROUTE OF ADMINISTRATION: UNKNOWN
  35. FOSAMAX [Suspect]
     Active Substance: ALENDRONATE SODIUM
     Route: 016
  36. FOSAMAX [Suspect]
     Active Substance: ALENDRONATE SODIUM
     Route: 048
  37. FOSAMAX [Suspect]
     Active Substance: ALENDRONATE SODIUM
     Indication: Rheumatoid arthritis
     Dosage: ROUTE OF ADMINISTRATION: UNKNOWN
  38. FOSAMAX [Suspect]
     Active Substance: ALENDRONATE SODIUM
     Route: 005
  39. FOLIC ACID [Suspect]
     Active Substance: FOLIC ACID
     Indication: Rheumatoid arthritis
     Route: 048
  40. GOLIMUMAB [Suspect]
     Active Substance: GOLIMUMAB
     Indication: Rheumatoid arthritis
     Dosage: ROUTE OF ADMINISTRATION: UNKNOWN
  41. HUMIRA [Suspect]
     Active Substance: ADALIMUMAB
     Indication: Rheumatoid arthritis
     Route: 058
  42. HUMIRA [Suspect]
     Active Substance: ADALIMUMAB
     Indication: Psoriatic arthropathy
     Route: 058
  43. HUMIRA [Suspect]
     Active Substance: ADALIMUMAB
     Route: 058
  44. HUMIRA [Suspect]
     Active Substance: ADALIMUMAB
     Dosage: ROUTE OF ADMINISTRATION: UNKNOWN
  45. HUMIRA [Suspect]
     Active Substance: ADALIMUMAB
     Indication: Rheumatoid arthritis
     Dosage: DOSE FORM: SOLUTION
     Route: 058
  46. HUMIRA [Suspect]
     Active Substance: ADALIMUMAB
     Indication: Psoriatic arthropathy
     Dosage: DOSE FORM: SOLUTION
     Route: 058
  47. HUMIRA [Suspect]
     Active Substance: ADALIMUMAB
     Indication: Rheumatoid arthritis
     Dosage: DOSE FORM: SOLUTION SUBCUTANEOUS, ROUTE OF ADMINISTRATION: UNKNOWN
  48. HUMIRA [Suspect]
     Active Substance: ADALIMUMAB
     Indication: Psoriatic arthropathy
  49. HYDROXYCHLOROQUINE [Suspect]
     Active Substance: HYDROXYCHLOROQUINE
     Indication: Rheumatoid arthritis
     Dosage: ROUTE OF ADMINISTRATION: UNKNOWN
  50. HYDROXYCHLOROQUINE [Suspect]
     Active Substance: HYDROXYCHLOROQUINE
     Dosage: ROUTE OF ADMINISTRATION: UNKNOWN
  51. HYDROXYCHLOROQUINE [Suspect]
     Active Substance: HYDROXYCHLOROQUINE
     Dosage: ROUTE OF ADMINISTRATION: UNKNOWN
  52. HYDROXYCHLOROQUINE [Suspect]
     Active Substance: HYDROXYCHLOROQUINE
     Dosage: ROUTE OF ADMINISTRATION: UNKNOWN
  53. HYDROXYCHLOROQUINE [Suspect]
     Active Substance: HYDROXYCHLOROQUINE
     Route: 048
  54. HYRIMOZ [Suspect]
     Active Substance: ADALIMUMAB-ADAZ
     Indication: Rheumatoid arthritis
     Dosage: DOSE FORM: SOLUTION SUBCUTANEOUS
     Route: 042
  55. HYRIMOZ [Suspect]
     Active Substance: ADALIMUMAB-ADAZ
     Indication: Psoriatic arthropathy
  56. HYRIMOZ [Suspect]
     Active Substance: ADALIMUMAB-ADAZ
     Indication: Rheumatoid arthritis
     Route: 042
  57. HYRIMOZ [Suspect]
     Active Substance: ADALIMUMAB-ADAZ
     Indication: Psoriatic arthropathy
     Route: 048
  58. HYRIMOZ [Suspect]
     Active Substance: ADALIMUMAB-ADAZ
     Route: 058
  59. HYRIMOZ [Suspect]
     Active Substance: ADALIMUMAB-ADAZ
     Route: 058
  60. INFLIXIMAB [Suspect]
     Active Substance: INFLIXIMAB
     Indication: Rheumatoid arthritis
     Route: 042
  61. INFLIXIMAB [Suspect]
     Active Substance: INFLIXIMAB
     Route: 042
  62. INFLIXIMAB [Suspect]
     Active Substance: INFLIXIMAB
     Route: 042
  63. ACETAMINOPHEN [Suspect]
     Active Substance: ACETAMINOPHEN
     Indication: Rheumatoid arthritis
     Dosage: ROUTE OF ADMINISTRATION: UNKNOWN
  64. ACETAMINOPHEN [Suspect]
     Active Substance: ACETAMINOPHEN
     Indication: Pyrexia
     Dosage: ROUTE OF ADMINISTRATION: UNKNOWN
  65. ACETAMINOPHEN [Suspect]
     Active Substance: ACETAMINOPHEN
     Indication: Pain
  66. PREDNISONE [Suspect]
     Active Substance: PREDNISONE
     Indication: Systemic lupus erythematosus
     Route: 048
  67. PREDNISONE [Suspect]
     Active Substance: PREDNISONE
     Indication: Synovitis
     Route: 048
  68. PREDNISONE [Suspect]
     Active Substance: PREDNISONE
     Indication: Rheumatoid arthritis
     Route: 048
  69. PREDNISONE [Suspect]
     Active Substance: PREDNISONE
     Indication: Psoriatic arthropathy
     Route: 048
  70. PREDNISONE [Suspect]
     Active Substance: PREDNISONE
     Indication: Pemphigus
     Route: 048
  71. PREDNISONE [Suspect]
     Active Substance: PREDNISONE
     Indication: Inflammation
     Route: 048
  72. PREDNISONE [Suspect]
     Active Substance: PREDNISONE
     Indication: Bursitis
     Route: 048
  73. APREPITANT [Suspect]
     Active Substance: APREPITANT
     Indication: Product used for unknown indication
     Route: 042
  74. APREPITANT [Suspect]
     Active Substance: APREPITANT
     Route: 048
  75. APREPITANT [Suspect]
     Active Substance: APREPITANT
     Dosage: ROUTE OF ADMINISTRATION: UNKNOWN
  76. APREPITANT [Suspect]
     Active Substance: APREPITANT
     Indication: Product used for unknown indication
     Route: 042
  77. CALCIUM GLUBIONATE [Suspect]
     Active Substance: CALCIUM GLUBIONATE
     Indication: Product used for unknown indication
     Route: 016
  78. CALCIUM GLUBIONATE [Suspect]
     Active Substance: CALCIUM GLUBIONATE
     Dosage: ROUTE OF ADMINISTRATION: UNKNOWN
  79. CERTOLIZUMAB PEGOL [Suspect]
     Active Substance: CERTOLIZUMAB PEGOL
     Indication: Product used for unknown indication
     Dosage: ROUTE OF ADMINISTRATION: UNKNOWN
  80. CHLORAPREP [Suspect]
     Active Substance: CHLORHEXIDINE GLUCONATE\ISOPROPYL ALCOHOL
     Indication: Product used for unknown indication
     Dosage: ROUTE OF ADMINISTRATION: UNKNOWN, DOSE FORM: SOLUTION
  81. CHLORAPREP [Suspect]
     Active Substance: CHLORHEXIDINE GLUCONATE\ISOPROPYL ALCOHOL
     Dosage: ROUTE OF ADMINISTRATION: UNKNOWN, DOSE FORM: SOLUTION
  82. CHLORAPREP [Suspect]
     Active Substance: CHLORHEXIDINE GLUCONATE\ISOPROPYL ALCOHOL
     Dosage: ROUTE OF ADMINISTRATION: UNKNOWN, DOSE FORM: SOLUTION
  83. CHLORAPREP [Suspect]
     Active Substance: CHLORHEXIDINE GLUCONATE\ISOPROPYL ALCOHOL
     Indication: Product used for unknown indication
     Dosage: ROUTE OF ADMINISTRATION: UNKNOWN
  84. CHLORAPREP [Suspect]
     Active Substance: CHLORHEXIDINE GLUCONATE\ISOPROPYL ALCOHOL
     Dosage: ROUTE OF ADMINISTRATION: UNKNOWN
  85. CHLORHEXIDINE GLUCONATE [Suspect]
     Active Substance: CHLORHEXIDINE GLUCONATE
     Indication: Product used for unknown indication
     Route: 048
  86. CHLORHEXIDINE GLUCONATE [Suspect]
     Active Substance: CHLORHEXIDINE GLUCONATE
     Indication: Product used for unknown indication
     Dosage: ROUTE OF ADMINISTRATION: UNKNOWN
  87. CHLORHEXIDINE GLUCONATE [Suspect]
     Active Substance: CHLORHEXIDINE GLUCONATE
     Dosage: ROUTE OF ADMINISTRATION: UNKNOWN
  88. CHLORHEXIDINE GLUCONATE [Suspect]
     Active Substance: CHLORHEXIDINE GLUCONATE
     Route: 002
  89. CIMZIA [Suspect]
     Active Substance: CERTOLIZUMAB PEGOL
     Indication: Rheumatoid arthritis
     Dosage: ROUTE OF ADMINISTRATION: UNKNOWN
  90. CIMZIA [Suspect]
     Active Substance: CERTOLIZUMAB PEGOL
     Indication: Psoriatic arthropathy
     Dosage: ROUTE OF ADMINISTRATION: UNKNOWN
  91. CIMZIA [Suspect]
     Active Substance: CERTOLIZUMAB PEGOL
     Indication: Psoriasis
     Dosage: ROUTE OF ADMINISTRATION: UNKNOWN
  92. CIMZIA [Suspect]
     Active Substance: CERTOLIZUMAB PEGOL
     Dosage: ROUTE OF ADMINISTRATION: UNKNOWN
  93. CIMZIA [Suspect]
     Active Substance: CERTOLIZUMAB PEGOL
     Route: 005
  94. CIMZIA [Suspect]
     Active Substance: CERTOLIZUMAB PEGOL
     Route: 058
  95. CIMZIA [Suspect]
     Active Substance: CERTOLIZUMAB PEGOL
     Route: 058
  96. CIMZIA [Suspect]
     Active Substance: CERTOLIZUMAB PEGOL
     Route: 058
  97. CIMZIA [Suspect]
     Active Substance: CERTOLIZUMAB PEGOL
     Route: 058
  98. CIMZIA [Suspect]
     Active Substance: CERTOLIZUMAB PEGOL
     Route: 058
  99. CIMZIA [Suspect]
     Active Substance: CERTOLIZUMAB PEGOL
     Route: 042
  100. COSENTYX [Suspect]
     Active Substance: SECUKINUMAB
     Indication: Rheumatoid arthritis
     Route: 042
  101. COSENTYX [Suspect]
     Active Substance: SECUKINUMAB
     Indication: Psoriatic arthropathy
  102. COSENTYX [Suspect]
     Active Substance: SECUKINUMAB
     Indication: Rheumatoid arthritis
     Route: 042
  103. COSENTYX [Suspect]
     Active Substance: SECUKINUMAB
     Indication: Psoriatic arthropathy
  104. DESOXIMETASONE [Suspect]
     Active Substance: DESOXIMETASONE
     Indication: Rheumatoid arthritis
     Route: 048
  105. DESOXIMETASONE [Suspect]
     Active Substance: DESOXIMETASONE
     Route: 003
  106. DESOXIMETASONE [Suspect]
     Active Substance: DESOXIMETASONE
     Route: 003
  107. DESOXIMETASONE [Suspect]
     Active Substance: DESOXIMETASONE
     Dosage: ROUTE OF ADMINISTRATION: UNKNOWN
  108. DESOXIMETASONE [Suspect]
     Active Substance: DESOXIMETASONE
     Route: 003
  109. DESOXIMETASONE [Suspect]
     Active Substance: DESOXIMETASONE
     Route: 048
  110. DESOXIMETASONE [Suspect]
     Active Substance: DESOXIMETASONE
     Route: 058
  111. DILTIAZEM [Suspect]
     Active Substance: DILTIAZEM
     Indication: Product used for unknown indication
     Dosage: ROUTE OF ADMINISTRATION: UNKNOWN, DOSE FORM: UNKNOWN
  112. DILTIAZEM [Suspect]
     Active Substance: DILTIAZEM
     Dosage: ROUTE OF ADMINISTRATION: UNKNOWN
  113. DOXYCYCLINE HYCLATE [Suspect]
     Active Substance: DOXYCYCLINE HYCLATE
     Indication: Product used for unknown indication
     Dosage: ROUTE OF ADMINISTRATION: UNKNOWN
  114. ENBREL [Suspect]
     Active Substance: ETANERCEPT
     Indication: Product used for unknown indication
     Route: 058
  115. ENBREL [Suspect]
     Active Substance: ETANERCEPT
     Route: 058
  116. ENBREL [Suspect]
     Active Substance: ETANERCEPT
     Route: 058
  117. ENBREL [Suspect]
     Active Substance: ETANERCEPT
     Route: 058
  118. ENBREL [Suspect]
     Active Substance: ETANERCEPT
     Dosage: ROUTE OF ADMINISTRATION: UNKNOWN
  119. ENBREL [Suspect]
     Active Substance: ETANERCEPT
     Route: 058
  120. ENTYVIO [Suspect]
     Active Substance: VEDOLIZUMAB
     Indication: Product used for unknown indication
     Dosage: ROUTE OF ADMINISTRATION: UNKNOWN
  121. ERELZI [Suspect]
     Active Substance: ETANERCEPT-SZZS
     Indication: Product used for unknown indication
     Dosage: ROUTE OF ADMINISTRATION: UNKNOWN
  122. ERELZI [Suspect]
     Active Substance: ETANERCEPT-SZZS
     Dosage: ROUTE OF ADMINISTRATION: UNKNOWN
  123. ERELZI [Suspect]
     Active Substance: ETANERCEPT-SZZS
     Dosage: ROUTE OF ADMINISTRATION: UNKNOWN
  124. ERELZI [Suspect]
     Active Substance: ETANERCEPT-SZZS
     Dosage: ROUTE OF ADMINISTRATION: UNKNOWN
  125. ERELZI [Suspect]
     Active Substance: ETANERCEPT-SZZS
     Route: 058
  126. FLUMETHASONE PIVALATE [Suspect]
     Active Substance: FLUMETHASONE PIVALATE
     Indication: Rheumatoid arthritis
     Dosage: ROUTE OF ADMINISTRATION: UNKNOWN
  127. FLUMETHASONE PIVALATE [Suspect]
     Active Substance: FLUMETHASONE PIVALATE
     Route: 058
  128. FLUMETHASONE PIVALATE [Suspect]
     Active Substance: FLUMETHASONE PIVALATE
     Dosage: ROUTE OF ADMINISTRATION: UNKNOWN
  129. FLUMETHASONE PIVALATE [Suspect]
     Active Substance: FLUMETHASONE PIVALATE
     Route: 003
  130. FOLIC ACID [Suspect]
     Active Substance: FOLIC ACID
     Indication: Rheumatoid arthritis
     Dosage: ROUTE OF ADMINISTRATION: UNKNOWN
  131. FOLIC ACID [Suspect]
     Active Substance: FOLIC ACID
     Dosage: ROUTE OF ADMINISTRATION: UNKNOWN
  132. FOLIC ACID [Suspect]
     Active Substance: FOLIC ACID
     Dosage: ROUTE OF ADMINISTRATION: UNKNOWN
  133. FOLIC ACID [Suspect]
     Active Substance: FOLIC ACID
     Dosage: ROUTE OF ADMINISTRATION: UNKNOWN
  134. FOLIC ACID [Suspect]
     Active Substance: FOLIC ACID
     Dosage: ROUTE OF ADMINISTRATION: UNKNOWN
  135. FOLIC ACID [Suspect]
     Active Substance: FOLIC ACID
     Dosage: ROUTE OF ADMINISTRATION: UNKNOWN
  136. FOLIC ACID [Suspect]
     Active Substance: FOLIC ACID
     Dosage: ROUTE OF ADMINISTRATION: UNKNOWN
  137. FOLIC ACID [Suspect]
     Active Substance: FOLIC ACID
     Dosage: ROUTE OF ADMINISTRATION: UNKNOWN
  138. FOLIC ACID [Suspect]
     Active Substance: FOLIC ACID
     Dosage: ROUTE OF ADMINISTRATION: UNKNOWN
  139. FOLIC ACID [Suspect]
     Active Substance: FOLIC ACID
     Dosage: ROUTE OF ADMINISTRATION: UNKNOWN
  140. FOLIC ACID [Suspect]
     Active Substance: FOLIC ACID
     Route: 048
  141. FOLIC ACID [Suspect]
     Active Substance: FOLIC ACID
     Dosage: ROUTE OF ADMINISTRATION: UNKNOWN
  142. FOLIC ACID [Suspect]
     Active Substance: FOLIC ACID
     Dosage: ROUTE OF ADMINISTRATION: UNKNOWN
  143. FOLIC ACID [Suspect]
     Active Substance: FOLIC ACID
     Route: 048
  144. FOLIC ACID [Suspect]
     Active Substance: FOLIC ACID
     Route: 058
  145. INFLIXIMAB [Suspect]
     Active Substance: INFLIXIMAB
     Indication: Rheumatoid arthritis
     Dosage: ROUTE OF ADMINISTRATION: UNKNOWN
  146. ISOPROPYL ALCOHOL [Suspect]
     Active Substance: ISOPROPYL ALCOHOL
     Indication: Product used for unknown indication
     Dosage: ROUTE OF ADMINISTRATION: UNKNOWN
  147. ISOPROPYL ALCOHOL [Suspect]
     Active Substance: ISOPROPYL ALCOHOL
     Dosage: ROUTE OF ADMINISTRATION: UNKNOWN
  148. ISOPROPYL ALCOHOL [Suspect]
     Active Substance: ISOPROPYL ALCOHOL
     Indication: Product used for unknown indication
     Dosage: ROUTE OF ADMINISTRATION: UNKNOWN, DOSE FORM:  LIQUID TOPICAL
  149. MESALAMINE [Suspect]
     Active Substance: MESALAMINE
     Indication: Product used for unknown indication
     Dosage: ROUTE OF ADMINISTRATION: UNKNOWN
  150. METHOTREXATE [Suspect]
     Active Substance: METHOTREXATE
     Indication: Rheumatoid arthritis
     Route: 048
  151. METHOTREXATE [Suspect]
     Active Substance: METHOTREXATE
     Route: 048
  152. METHOTREXATE [Suspect]
     Active Substance: METHOTREXATE
     Route: 048
  153. METHOTREXATE [Suspect]
     Active Substance: METHOTREXATE
     Route: 048
  154. METHOTREXATE [Suspect]
     Active Substance: METHOTREXATE
     Route: 048
  155. METHOTREXATE [Suspect]
     Active Substance: METHOTREXATE
     Dosage: ROUTE OF ADMINISTRATION: UNKNOWN
  156. METHOTREXATE [Suspect]
     Active Substance: METHOTREXATE
     Dosage: ROUTE OF ADMINISTRATION: UNKNOWN
  157. METHOTREXATE [Suspect]
     Active Substance: METHOTREXATE
     Dosage: ROUTE OF ADMINISTRATION: UNKNOWN
  158. METHOTREXATE [Suspect]
     Active Substance: METHOTREXATE
     Dosage: ROUTE OF ADMINISTRATION: UNKNOWN
  159. METHOTREXATE [Suspect]
     Active Substance: METHOTREXATE
     Dosage: ROUTE OF ADMINISTRATION: UNKNOWN
  160. METHOTREXATE [Suspect]
     Active Substance: METHOTREXATE
     Dosage: ROUTE OF ADMINISTRATION: UNKNOWN
  161. METHOTREXATE [Suspect]
     Active Substance: METHOTREXATE
     Dosage: ROUTE OF ADMINISTRATION: UNKNOWN
  162. METHOTREXATE [Suspect]
     Active Substance: METHOTREXATE
     Dosage: ROUTE OF ADMINISTRATION: UNKNOWN
  163. METHOTREXATE [Suspect]
     Active Substance: METHOTREXATE
     Dosage: ROUTE OF ADMINISTRATION: UNKNOWN
  164. METHOTREXATE [Suspect]
     Active Substance: METHOTREXATE
     Route: 013
  165. METHOTREXATE [Suspect]
     Active Substance: METHOTREXATE
     Indication: Rheumatoid arthritis
     Dosage: SOLUTION INTRA ARTERIAL, ROUTE OF ADMINISTRATION: UNKNOWN
  166. NAPROXEN SODIUM [Suspect]
     Active Substance: NAPROXEN SODIUM
     Indication: Rheumatoid arthritis
     Dosage: ROUTE OF ADMINISTRATION: UNKNOWN
  167. ORENCIA [Suspect]
     Active Substance: ABATACEPT
     Indication: Rheumatoid arthritis
     Dosage: ROUTE OF ADMINISTRATION: UNKNOWN
  168. ORENCIA [Suspect]
     Active Substance: ABATACEPT
     Route: 058
  169. ORENCIA [Suspect]
     Active Substance: ABATACEPT
     Route: 042
  170. ORENCIA [Suspect]
     Active Substance: ABATACEPT
     Route: 042
  171. ORENCIA [Suspect]
     Active Substance: ABATACEPT
     Dosage: ROUTE OF ADMINISTRATION: UNKNOWN
  172. ORENCIA [Suspect]
     Active Substance: ABATACEPT
     Dosage: ROUTE OF ADMINISTRATION: UNKNOWN
  173. ORENCIA [Suspect]
     Active Substance: ABATACEPT
     Indication: Product used for unknown indication
     Route: 048
  174. OXYCODONE [Suspect]
     Active Substance: OXYCODONE
     Indication: Product used for unknown indication
     Dosage: ROUTE OF ADMINISTRATION: UNKNOWN
  175. OXYCODONE HYDROCHLORIDE [Suspect]
     Active Substance: OXYCODONE HYDROCHLORIDE
     Indication: Product used for unknown indication
     Dosage: ROUTE OF ADMINISTRATION: UNKNOWN
  176. OXYCODONE TEREPHTHALATE [Suspect]
     Active Substance: OXYCODONE TEREPHTHALATE
     Indication: Product used for unknown indication
     Dosage: ROUTE OF ADMINISTRATION: UNKNOWN
  177. PERIOGARD [Suspect]
     Active Substance: CHLORHEXIDINE GLUCONATE
     Indication: Product used for unknown indication
     Dosage: ROUTE OF ADMINISTRATION: UNKNOWN
  178. PERIOGARD [Suspect]
     Active Substance: CHLORHEXIDINE GLUCONATE
     Route: 048
  179. PERIOGARD [Suspect]
     Active Substance: CHLORHEXIDINE GLUCONATE
     Route: 002
  180. PSEUDOEPHEDRINE HYDROCHLORIDE [Suspect]
     Active Substance: PSEUDOEPHEDRINE HYDROCHLORIDE
     Indication: Product used for unknown indication
  181. REMICADE [Suspect]
     Active Substance: INFLIXIMAB
     Indication: Rheumatoid arthritis
     Dosage: DOSE FORM: POWDER FOR SOLUTION FOR INJECTION OR INFUSION
     Route: 042
  182. REMICADE [Suspect]
     Active Substance: INFLIXIMAB
     Dosage: ROUTE OF ADMINISTRATION: UNKNOWN, DOSE FORM: POWDER FOR SOLUTION FOR INJECTION OR INFUSION
  183. REMICADE [Suspect]
     Active Substance: INFLIXIMAB
     Indication: Rheumatoid arthritis
     Dosage: POWDER FOR SOLUTION INTRAVENOUS
     Route: 042
  184. APREMILAST [Suspect]
     Active Substance: APREMILAST
     Indication: Product used for unknown indication
     Dosage: ROUTE OF ADMINISTRATION: UNKNOWN, DOSE FORM: UNKNOWN
  185. APREMILAST [Suspect]
     Active Substance: APREMILAST
     Indication: Product used for unknown indication
     Route: 048
  186. CELECOXIB [Suspect]
     Active Substance: CELECOXIB
     Indication: Rheumatoid arthritis
     Dosage: ROUTE OF ADMINISTRATION: UNKNOWN
  187. CELECOXIB [Suspect]
     Active Substance: CELECOXIB
     Indication: Product used for unknown indication
     Dosage: ROUTE OF ADMINISTRATION: UNKNOWN
  188. CELECOXIB [Suspect]
     Active Substance: CELECOXIB
     Indication: Arthritis
     Dosage: ROUTE OF ADMINISTRATION: UNKNOWN
  189. LEFLUNOMIDE [Suspect]
     Active Substance: LEFLUNOMIDE
     Indication: Rheumatoid arthritis
     Route: 048
  190. LEFLUNOMIDE [Suspect]
     Active Substance: LEFLUNOMIDE
     Indication: Rheumatoid arthritis
     Route: 048
  191. PHTHALYLSULFATHIAZOLE [Suspect]
     Active Substance: PHTHALYLSULFATHIAZOLE
     Indication: Rheumatoid arthritis
     Route: 048
  192. PHTHALYLSULFATHIAZOLE [Suspect]
     Active Substance: PHTHALYLSULFATHIAZOLE
     Route: 048
  193. PHTHALYLSULFATHIAZOLE [Suspect]
     Active Substance: PHTHALYLSULFATHIAZOLE
     Route: 048
  194. PHTHALYLSULFATHIAZOLE [Suspect]
     Active Substance: PHTHALYLSULFATHIAZOLE
     Route: 048
  195. PHTHALYLSULFATHIAZOLE [Suspect]
     Active Substance: PHTHALYLSULFATHIAZOLE
     Route: 016
  196. PHTHALYLSULFATHIAZOLE [Suspect]
     Active Substance: PHTHALYLSULFATHIAZOLE
     Dosage: ROUTE OF ADMINISTRATION: UNKNOWN
  197. PHTHALYLSULFATHIAZOLE [Suspect]
     Active Substance: PHTHALYLSULFATHIAZOLE
     Dosage: ROUTE OF ADMINISTRATION: UNKNOWN
  198. PHTHALYLSULFATHIAZOLE [Suspect]
     Active Substance: PHTHALYLSULFATHIAZOLE
     Dosage: ROUTE OF ADMINISTRATION: UNKNOWN
  199. PHTHALYLSULFATHIAZOLE [Suspect]
     Active Substance: PHTHALYLSULFATHIAZOLE
     Dosage: ROUTE OF ADMINISTRATION: UNKNOWN
  200. PREDNISOLONE [Suspect]
     Active Substance: PREDNISOLONE
     Indication: Product used for unknown indication
     Route: 048
  201. PREDNISOLONE [Suspect]
     Active Substance: PREDNISOLONE
     Route: 048
  202. PREDNISOLONE [Suspect]
     Active Substance: PREDNISOLONE
     Dosage: ROUTE OF ADMINISTRATION: UNKNOWN
  203. PREDNISOLONE [Suspect]
     Active Substance: PREDNISOLONE
     Dosage: ROUTE OF ADMINISTRATION: UNKNOWN
  204. PREDNISOLONE [Suspect]
     Active Substance: PREDNISOLONE
     Route: 048
  205. PSEUDOEPHEDRINE HYDROCHLORIDE [Suspect]
     Active Substance: PSEUDOEPHEDRINE HYDROCHLORIDE
     Indication: Product used for unknown indication
     Dosage: ROUTE OF ADMINISTRATION: UNKNOWN
  206. PSEUDOEPHEDRINE HYDROCHLORIDE [Suspect]
     Active Substance: PSEUDOEPHEDRINE HYDROCHLORIDE
     Dosage: ROUTE OF ADMINISTRATION: UNKNOWN
  207. CETIRIZINE HYDROCHLORIDE\PSEUDOEPHEDRINE HYDROCHLORIDE [Suspect]
     Active Substance: CETIRIZINE HYDROCHLORIDE\PSEUDOEPHEDRINE HYDROCHLORIDE
     Indication: Rheumatoid arthritis
     Dosage: TABLET (EXTENDED RELEASE), ROUTE OF ADMINISTRATION: UNKNOWN
  208. OTEZLA [Suspect]
     Active Substance: APREMILAST
     Indication: Product used for unknown indication
     Dosage: ROUTE OF ADMINISTRATION: UNKNOWN
  209. OTEZLA [Suspect]
     Active Substance: APREMILAST
     Route: 048
  210. DICLOFENAC DIETHYLAMINE [Suspect]
     Active Substance: DICLOFENAC DIETHYLAMINE
     Indication: Product used for unknown indication
     Dosage: ROUTE OF ADMINISTRATION: UNKNOWN

REACTIONS (31)
  - Autoimmune disorder [Fatal]
  - Contusion [Fatal]
  - Decreased appetite [Fatal]
  - Deep vein thrombosis postoperative [Fatal]
  - Glossodynia [Fatal]
  - Hand deformity [Fatal]
  - Headache [Fatal]
  - Anti-cyclic citrullinated peptide antibody [Fatal]
  - Anxiety [Fatal]
  - Asthenia [Fatal]
  - Asthma [Fatal]
  - Blister [Fatal]
  - Blood cholesterol increased [Fatal]
  - Bone erosion [Fatal]
  - Bursitis [Fatal]
  - C-reactive protein abnormal [Fatal]
  - C-reactive protein increased [Fatal]
  - Chest pain [Fatal]
  - Condition aggravated [Fatal]
  - Confusional state [Fatal]
  - Drug hypersensitivity [Fatal]
  - Drug intolerance [Fatal]
  - Facet joint syndrome [Fatal]
  - Fatigue [Fatal]
  - Fibromyalgia [Fatal]
  - Folliculitis [Fatal]
  - Gait inability [Fatal]
  - Gastrointestinal disorder [Fatal]
  - Helicobacter infection [Fatal]
  - Abdominal pain [Fatal]
  - Alopecia [Fatal]
